FAERS Safety Report 9837159 (Version 1)
Quarter: 2013Q4

REPORT INFORMATION
  Report Type: Spontaneous
  Country: US (occurrence: None)
  Receive Date: 20131205
  Receipt Date: 20131205
  Transmission Date: 20140711
  Serious: No
  Sender: FDA-Public Use
  Company Number: 163-POMAL-13083196

PATIENT
  Age: 89 Year
  Sex: Male
  Weight: 57.2 kg

DRUGS (10)
  1. POMALYST (POMALIDOMIDE) (4 MILLIGRAM, CAPSULES) [Suspect]
     Indication: PLASMA CELL MYELOMA
     Dosage: 4MG, 21 IN 28D, PO
     Route: 048
     Dates: start: 20130606
  2. MULTIVITAMINS (MULTIVITAMINS) [Concomitant]
  3. DEXAMETHASONE (DEXAMETHASONE) (TABLETS) [Concomitant]
  4. ASPIRIN (ACETYLSALICYLIC ACID) [Concomitant]
  5. LASIX (FUROSEMIDE) TABLET [Concomitant]
  6. LISINOPRIL (LISINOPRIL) (TABLET) [Concomitant]
  7. VITAMN B12 (CYANOCOBALAMIN) (TABLETS) [Concomitant]
  8. LIPITOR (ATORVASTATIN) [Concomitant]
  9. TOPROL XL (METOPROLOL SUCCINATE) [Concomitant]
  10. CENTRUM (CENTRUM) (CHEWABLE TABLET) [Concomitant]

REACTIONS (3)
  - White blood cell count decreased [None]
  - Blood count abnormal [None]
  - Tooth abscess [None]
